FAERS Safety Report 22605708 (Version 2)
Quarter: 2023Q2

REPORT INFORMATION
  Report Type: Report from Study
  Country: BE (occurrence: BE)
  Receive Date: 20230615
  Receipt Date: 20230626
  Transmission Date: 20230721
  Serious: Yes (Hospitalization)
  Sender: FDA-Public Use
  Company Number: BE-SA-SAC20230607000506

PATIENT
  Age: 86 Year
  Sex: Female
  Weight: 66 kg

DRUGS (12)
  1. PALBOCICLIB [Suspect]
     Active Substance: PALBOCICLIB
     Indication: Breast cancer stage II
     Dosage: 100 MG
     Route: 048
     Dates: start: 20200625, end: 20200625
  2. PALBOCICLIB [Suspect]
     Active Substance: PALBOCICLIB
     Dosage: 100 MG
     Route: 048
     Dates: start: 20230519, end: 20230530
  3. AMCENESTRANT [Suspect]
     Active Substance: AMCENESTRANT
     Indication: Breast cancer stage II
     Dosage: 200 MG, QD
     Route: 048
     Dates: start: 20200625, end: 20200625
  4. AMCENESTRANT [Suspect]
     Active Substance: AMCENESTRANT
     Dosage: 200 MG, QD
     Route: 048
     Dates: start: 20230519, end: 20230530
  5. XGEVA [Concomitant]
     Active Substance: DENOSUMAB
     Dosage: UNK
     Route: 050
     Dates: start: 201812
  6. DIOSMIN [Concomitant]
     Active Substance: DIOSMIN
     Dosage: UNK
     Route: 048
     Dates: start: 2018
  7. PERINDOPRIL ERBUMINE [Concomitant]
     Active Substance: PERINDOPRIL ERBUMINE
     Dosage: UNK
     Route: 048
     Dates: start: 2018
  8. INDAPAMIDE\PERINDOPRIL [Concomitant]
     Active Substance: INDAPAMIDE\PERINDOPRIL
     Dosage: UNK
     Route: 048
     Dates: start: 2018
  9. PANTOPRAZOLE [Concomitant]
     Active Substance: PANTOPRAZOLE
     Indication: Prophylaxis
     Dosage: UNK
     Route: 048
     Dates: start: 2018
  10. ACETAMINOPHEN [Concomitant]
     Active Substance: ACETAMINOPHEN
     Dosage: UNK
     Route: 048
     Dates: start: 2017
  11. IBUPROFEN [Concomitant]
     Active Substance: IBUPROFEN
     Dosage: UNK
     Route: 048
     Dates: start: 20210702
  12. CYSTINE [Concomitant]
     Active Substance: CYSTINE
     Dosage: UNK
     Route: 048
     Dates: start: 20210903

REACTIONS (1)
  - Dyspnoea exertional [Recovered/Resolved]

NARRATIVE: CASE EVENT DATE: 20230604
